FAERS Safety Report 11811923 (Version 2)
Quarter: 2015Q4

REPORT INFORMATION
  Report Type: Spontaneous
  Country: DE (occurrence: DE)
  Receive Date: 20151208
  Receipt Date: 20151210
  Transmission Date: 20160305
  Serious: No
  Sender: FDA-Public Use
  Company Number: DE-CONCORDIA PHARMACEUTICALS INC.-CO-ZO-DE-2015-085

PATIENT
  Age: 35 Year
  Sex: Male

DRUGS (3)
  1. ZONISAMIDE. [Suspect]
     Active Substance: ZONISAMIDE
     Indication: EPILEPSY
     Route: 048
     Dates: end: 2015
  2. ZONISAMIDE. [Suspect]
     Active Substance: ZONISAMIDE
     Route: 048
     Dates: start: 2015, end: 20151102
  3. ZONISAMIDE. [Suspect]
     Active Substance: ZONISAMIDE
     Route: 048
     Dates: start: 20151104, end: 201511

REACTIONS (5)
  - Feeling hot [Recovering/Resolving]
  - Hypertonia [Recovering/Resolving]
  - Dizziness [Recovering/Resolving]
  - Seizure [Recovered/Resolved]
  - Nausea [Recovering/Resolving]

NARRATIVE: CASE EVENT DATE: 20151030
